APPROVED DRUG PRODUCT: ACHROMYCIN
Active Ingredient: HYDROCORTISONE; TETRACYCLINE HYDROCHLORIDE
Strength: 1.5%;1%
Dosage Form/Route: OINTMENT;OPHTHALMIC
Application: N050272 | Product #001
Applicant: LEDERLE LABORATORIES DIV AMERICAN CYANAMID CO
Approved: Approved Prior to Jan 1, 1982 | RLD: No | RS: No | Type: DISCN